FAERS Safety Report 14647339 (Version 1)
Quarter: 2018Q1

REPORT INFORMATION
  Report Type: Spontaneous
  Country: US (occurrence: US)
  Receive Date: 20180316
  Receipt Date: 20180316
  Transmission Date: 20180509
  Serious: No
  Sender: FDA-Public Use
  Company Number: US-PFIZER INC-2016431838

PATIENT
  Age: 74 Year
  Sex: Female
  Weight: 81.65 kg

DRUGS (1)
  1. XELJANZ [Suspect]
     Active Substance: TOFACITINIB CITRATE
     Indication: RHEUMATOID ARTHRITIS
     Dosage: 5 MG, 2X/DAY (TWICE A DAY)
     Route: 048
     Dates: start: 2015

REACTIONS (6)
  - Fatigue [Recovered/Resolved]
  - Paraesthesia [Unknown]
  - Cystitis [Unknown]
  - Drug hypersensitivity [Unknown]
  - Pain [Unknown]
  - Cough [Recovered/Resolved]

NARRATIVE: CASE EVENT DATE: 20160911
